FAERS Safety Report 5924784-6 (Version None)
Quarter: 2008Q4

REPORT INFORMATION
  Report Type: 
  Country: None (occurrence: None)
  Receive Date: 20081017
  Receipt Date: 20081007
  Transmission Date: 20090506
  Serious: Yes (Congenital Anomaly)
  Sender: FDA-Public Use
  Company Number: US009816

PATIENT
  Sex: Male
  Weight: 7.625 kg

DRUGS (2)
  1. GABITRIL [Suspect]
     Dosage: 400 MG  TRANSPLACENTAL
     Route: 064
     Dates: start: 20000301, end: 20000601
  2. DILANTIN [Suspect]
     Dates: start: 20000301

REACTIONS (2)
  - CONGENITAL CYSTIC KIDNEY DISEASE [None]
  - MATERNAL DRUGS AFFECTING FOETUS [None]
